FAERS Safety Report 7281696-6 (Version None)
Quarter: 2011Q1

REPORT INFORMATION
  Report Type: 
  Country: None (occurrence: None)
  Receive Date: 20110126
  Receipt Date: 20110112
  Transmission Date: 20110831
  Serious: Yes (Hospitalization, Other)
  Sender: FDA-Public Use
  Company Number: 025019

PATIENT
  Age: 30 Year
  Sex: Female

DRUGS (3)
  1. KEPPRA [Suspect]
     Indication: EPILEPSY
     Dosage: (500 MG BID)
     Dates: start: 20101217
  2. CONTRACEPTIVES NOS [Concomitant]
  3. LEVETIRACETAM [Suspect]
     Indication: EPILEPSY
     Dosage: (DRUG BEING WITHDRAWN)

REACTIONS (4)
  - ENDOMETRIOSIS [None]
  - PRODUCT SUBSTITUTION ISSUE [None]
  - DRUG INEFFECTIVE [None]
  - HAEMORRHAGE [None]
